FAERS Safety Report 7815098-8 (Version None)
Quarter: 2011Q4

REPORT INFORMATION
  Report Type: 
  Country: None (occurrence: None)
  Receive Date: 20111014
  Receipt Date: 20111014
  Transmission Date: 20120403
  Serious: No
  Sender: FDA-Public Use
  Company Number: None

PATIENT

DRUGS (2)
  1. LIDOCAINE [Suspect]
     Indication: ANAESTHESIA PROCEDURE
     Dosage: 50ML
     Route: 042
     Dates: start: 20111010, end: 20111013
  2. LIDOCAINE  FREE VIAL5ML [Concomitant]
     Indication: ANAESTHESIA PROCEDURE
     Dosage: 50ML
     Dates: start: 20111003, end: 20111007

REACTIONS (2)
  - ANAESTHETIC COMPLICATION [None]
  - PRODUCT FORMULATION ISSUE [None]
